FAERS Safety Report 19138076 (Version 4)
Quarter: 2021Q4

REPORT INFORMATION
  Report Type: Report from Study
  Country: DE (occurrence: DE)
  Receive Date: 20210414
  Receipt Date: 20211111
  Transmission Date: 20220304
  Serious: Yes (Hospitalization, Congenital Anomaly, Other)
  Sender: FDA-Public Use
  Company Number: DE-BIOGEN-2021BI01000833

PATIENT
  Age: 0 Day
  Sex: Male
  Weight: 2.07 kg

DRUGS (2)
  1. TYSABRI [Suspect]
     Active Substance: NATALIZUMAB
     Indication: Maternal exposure timing unspecified
     Dosage: LAST NTZ IN GESTATIONAL WEEK 32+5
     Route: 064
  2. TYSABRI [Suspect]
     Active Substance: NATALIZUMAB
     Route: 064

REACTIONS (9)
  - Ventricular septal defect [Recovered/Resolved]
  - Premature baby [Recovered/Resolved]
  - Foetal growth restriction [Recovered/Resolved]
  - Low birth weight baby [Unknown]
  - Amniotic cavity infection [Unknown]
  - Sleep apnoea syndrome [Unknown]
  - Jaundice neonatal [Unknown]
  - Anaemia neonatal [Unknown]
  - Foetal exposure during pregnancy [Recovered/Resolved]

NARRATIVE: CASE EVENT DATE: 20180504
